FAERS Safety Report 16707453 (Version 2)
Quarter: 2019Q3

REPORT INFORMATION
  Report Type: Spontaneous
  Country: US (occurrence: US)
  Receive Date: 20190815
  Receipt Date: 20190822
  Transmission Date: 20191004
  Serious: No
  Sender: FDA-Public Use
  Company Number: US-PFIZER INC-2019346360

PATIENT
  Age: 64 Year
  Sex: Female

DRUGS (1)
  1. PREGABALIN. [Suspect]
     Active Substance: PREGABALIN
     Dosage: UNK
     Dates: start: 20190806

REACTIONS (3)
  - Feeling abnormal [Unknown]
  - Sedation [Unknown]
  - Nervousness [Unknown]

NARRATIVE: CASE EVENT DATE: 20190807
